FAERS Safety Report 10007832 (Version 2)
Quarter: 2014Q1

REPORT INFORMATION
  Report Type: Spontaneous
  Country: US (occurrence: US)
  Receive Date: 20140313
  Receipt Date: 20140313
  Transmission Date: 20141002
  Serious: No
  Sender: FDA-Public Use
  Company Number: US-GILEAD-2013-0070288

PATIENT
  Age: 25 Year
  Sex: Female

DRUGS (2)
  1. LETAIRIS [Suspect]
     Indication: PULMONARY HYPERTENSION
     Route: 048
     Dates: start: 20130118, end: 20130201
  2. LETAIRIS [Suspect]
     Indication: HEART DISEASE CONGENITAL

REACTIONS (1)
  - Rash [Recovered/Resolved]
